FAERS Safety Report 6236314-2 (Version None)
Quarter: 2009Q2

REPORT INFORMATION
  Report Type: 
  Country: None (occurrence: None)
  Receive Date: 20090619
  Receipt Date: 20090612
  Transmission Date: 20091009
  Serious: Yes (Hospitalization)
  Sender: FDA-Public Use
  Company Number: FR-ASTRAZENECA-2009CG00656

PATIENT
  Age: 8 Month
  Sex: Female
  Weight: 9 kg

DRUGS (4)
  1. MOPRAL [Suspect]
     Indication: GASTROOESOPHAGEAL REFLUX DISEASE
     Route: 048
     Dates: start: 20080307, end: 20081201
  2. MOPRAL [Suspect]
     Route: 048
     Dates: end: 20090310
  3. GAVISCON [Concomitant]
     Indication: GASTROOESOPHAGEAL REFLUX DISEASE
     Route: 048
     Dates: start: 20080301, end: 20080501
  4. MOTILIUM [Concomitant]
     Indication: REGURGITATION
     Dates: start: 20080401, end: 20080501

REACTIONS (1)
  - PETIT MAL EPILEPSY [None]
